FAERS Safety Report 14353302 (Version 3)
Quarter: 2018Q1

REPORT INFORMATION
  Report Type: Report from Study
  Country: ES (occurrence: ES)
  Receive Date: 20180105
  Receipt Date: 20180302
  Transmission Date: 20180509
  Serious: Yes (Death, Other)
  Sender: FDA-Public Use
  Company Number: ES-AMGEN-ESPSL2017185763

PATIENT
  Age: 103 Year
  Sex: Female

DRUGS (1)
  1. NPLATE [Suspect]
     Active Substance: ROMIPLOSTIM
     Indication: THROMBOCYTOPENIC PURPURA
     Dosage: 500 MUG, QWK
     Route: 065

REACTIONS (4)
  - Palliative care [Not Recovered/Not Resolved]
  - Death [Fatal]
  - Accidental exposure to product [Recovering/Resolving]
  - Therapy non-responder [Unknown]

NARRATIVE: CASE EVENT DATE: 201712
